FAERS Safety Report 7724583-9 (Version None)
Quarter: 2011Q3

REPORT INFORMATION
  Report Type: 
  Country: None (occurrence: None)
  Receive Date: 20110829
  Receipt Date: 20110822
  Transmission Date: 20111222
  Serious: Yes (Hospitalization)
  Sender: FDA-Public Use
  Company Number: WWISSUE-658

PATIENT
  Sex: Female

DRUGS (2)
  1. PREDNISONE [Suspect]
     Dates: start: 20110801, end: 20110822
  2. ACYCLOVIR [Concomitant]

REACTIONS (2)
  - GASTRIC HAEMORRHAGE [None]
  - MOUTH HAEMORRHAGE [None]
